FAERS Safety Report 5060927-7 (Version None)
Quarter: 2006Q2

REPORT INFORMATION
  Report Type: 
  Country: None (occurrence: None)
  Receive Date: 20060630
  Receipt Date: 20060220
  Transmission Date: 20061013
  Serious: Yes (Other)
  Sender: FDA-Public Use
  Company Number: 2005126098

PATIENT
  Sex: Female
  Weight: 72.5755 kg

DRUGS (4)
  1. NICOTROL [Suspect]
     Indication: SMOKING CESSATION THERAPY
     Dosage: 11/2-2  CARTRIDGES DAILY ON AND OFF, INHALATION
     Route: 055
     Dates: start: 19950101, end: 20050908
  2. FLUPHENAZINE [Concomitant]
  3. CIPROFLOXACIN [Concomitant]
  4. NIFEDIPINE [Concomitant]

REACTIONS (5)
  - DEPENDENCE [None]
  - DRUG INEFFECTIVE [None]
  - ORAL FUNGAL INFECTION [None]
  - OVERDOSE [None]
  - VULVOVAGINAL MYCOTIC INFECTION [None]
